FAERS Safety Report 8784431 (Version 1)
Quarter: 2012Q4

REPORT INFORMATION
  Report Type: Report from Study
  Country: US (occurrence: US)
  Receive Date: 20120911
  Receipt Date: 20120911
  Transmission Date: 20130627
  Serious: Yes (Hospitalization, Other)
  Sender: FDA-Public Use
  Company Number: US-PFIZER INC-2012223858

PATIENT
  Age: 70 Year
  Sex: Female

DRUGS (14)
  1. IBUPROFEN [Suspect]
     Indication: PRODUCT USED FOR UNKNOWN INDICATION
     Dosage: UNK
     Route: 065
  2. REMICADE [Suspect]
     Indication: RHEUMATOID ARTHRITIS
     Dosage: 700 mg, UNK
     Route: 042
     Dates: start: 20120814
  3. REMICADE [Suspect]
     Dosage: 700 mg, UNK
     Route: 042
     Dates: start: 200411, end: 20120613
  4. METHOTREXATE [Concomitant]
     Indication: RHEUMATOID ARTHRITIS
     Dosage: UNK
     Route: 065
     Dates: start: 2004
  5. FOLIC ACID [Concomitant]
     Indication: RHEUMATOID ARTHRITIS
     Dosage: UNK
     Route: 065
     Dates: start: 2004
  6. ATENOLOL [Concomitant]
     Indication: BLOOD PRESSURE ABNORMAL
     Dosage: UNK
     Route: 065
  7. CELEBREX [Concomitant]
     Indication: RHEUMATOID ARTHRITIS
     Dosage: UNK
     Route: 065
     Dates: start: 201208
  8. CELEBREX [Concomitant]
     Route: 065
     Dates: start: 2011, end: 20120716
  9. SYNTHROID [Concomitant]
     Indication: THYROID DISORDER
     Dosage: UNK
     Route: 065
  10. LISINOPRIL [Concomitant]
     Indication: BLOOD PRESSURE ABNORMAL
     Dosage: UNK
     Route: 065
  11. CALCIUM AND VITAMIN D [Concomitant]
     Indication: BONE DISORDER
     Dosage: UNK
     Route: 065
  12. VITAMIN C [Concomitant]
     Dosage: UNK
     Route: 065
  13. ASPIRIN [Concomitant]
     Dosage: UNK
     Route: 065
     Dates: end: 20120716
  14. GARLIC [Concomitant]
     Dosage: UNK
     Route: 065

REACTIONS (3)
  - Gastric ulcer [Recovered/Resolved]
  - Ulcer haemorrhage [Unknown]
  - Surgery [Recovered/Resolved]
